FAERS Safety Report 15189975 (Version 2)
Quarter: 2018Q3

REPORT INFORMATION
  Report Type: Spontaneous
  Country: CH (occurrence: CH)
  Receive Date: 20180724
  Receipt Date: 20180820
  Transmission Date: 20181010
  Serious: Yes (Disabling)
  Sender: FDA-Public Use
  Company Number: CH-PFIZER INC-2018295846

PATIENT
  Age: 56 Year
  Sex: Female

DRUGS (3)
  1. PROLIA [Suspect]
     Active Substance: DENOSUMAB
     Indication: OSTEOPOROSIS
     Dosage: 60 MG, Q6MONTHS
     Route: 058
     Dates: end: 20170824
  2. PANTOZOL [Suspect]
     Active Substance: PANTOPRAZOLE SODIUM
     Dosage: 40 MG, QD
     Route: 048
  3. PREDNISON [Suspect]
     Active Substance: PREDNISONE
     Indication: ASTHMA
     Dosage: 20 MG, QD
     Route: 048

REACTIONS (2)
  - Lumbar vertebral fracture [Unknown]
  - Serum procollagen type I N-terminal propeptide increased [Unknown]

NARRATIVE: CASE EVENT DATE: 20180604
